FAERS Safety Report 21544997 (Version 1)
Quarter: 2022Q4

REPORT INFORMATION
  Report Type: Spontaneous
  Country: US (occurrence: US)
  Receive Date: 20221103
  Receipt Date: 20221103
  Transmission Date: 20230113
  Serious: Yes (Hospitalization, Other)
  Sender: FDA-Public Use
  Company Number: US-BRISTOL-MYERS SQUIBB COMPANY-2022-129948

PATIENT
  Age: 59 Year
  Sex: Female

DRUGS (1)
  1. ONUREG [Suspect]
     Active Substance: AZACITIDINE
     Indication: Product used for unknown indication
     Dosage: DOSE : ONE TABLET;     FREQ : ONCE DAILY FOR DAYS 1-14 OF A 28 DAY CYCLE
     Route: 048

REACTIONS (1)
  - Recurrent cancer [Unknown]
